FAERS Safety Report 9359096 (Version 1)
Quarter: 2013Q2

REPORT INFORMATION
  Report Type: Spontaneous
  Country: US (occurrence: US)
  Receive Date: 20130620
  Receipt Date: 20130620
  Transmission Date: 20140414
  Serious: No
  Sender: FDA-Public Use
  Company Number: US-009507513-1306USA009813

PATIENT
  Age: 18 Year
  Sex: Female

DRUGS (1)
  1. LOTRIMIN AF [Suspect]
     Indication: PRURITUS
     Dosage: UNK, UNKNOWN
     Route: 061
     Dates: start: 20130601

REACTIONS (2)
  - Burning sensation [Not Recovered/Not Resolved]
  - Off label use [Unknown]
